FAERS Safety Report 14210909 (Version 1)
Quarter: 2017Q4

REPORT INFORMATION
  Report Type: Spontaneous
  Country: US (occurrence: US)
  Receive Date: 20171121
  Receipt Date: 20171121
  Transmission Date: 20180321
  Serious: No
  Sender: FDA-Public Use
  Company Number: US-BAUSCH-BL-2017-028240

PATIENT
  Age: 58 Year
  Sex: Female
  Weight: 66.74 kg

DRUGS (1)
  1. LOTEMAX [Suspect]
     Active Substance: LOTEPREDNOL ETABONATE
     Indication: PROPHYLAXIS AGAINST TRANSPLANT REJECTION
     Route: 047
     Dates: start: 2017

REACTIONS (2)
  - Product physical consistency issue [Unknown]
  - Off label use [Not Recovered/Not Resolved]

NARRATIVE: CASE EVENT DATE: 2017
